FAERS Safety Report 25903663 (Version 2)
Quarter: 2025Q4

REPORT INFORMATION
  Report Type: Spontaneous
  Country: JP (occurrence: JP)
  Receive Date: 20251010
  Receipt Date: 20251016
  Transmission Date: 20260118
  Serious: Yes (Other)
  Sender: ALEXION PHARMACEUTICALS
  Company Number: JP-ASTRAZENECA-202510JPN000792JP

PATIENT
  Sex: Male
  Weight: 70 kg

DRUGS (9)
  1. SOLIRIS [Suspect]
     Active Substance: ECULIZUMAB
     Indication: Myasthenia gravis
     Dosage: 2700 MILLIGRAM
     Route: 065
  2. PREDNISOLONE [Concomitant]
     Active Substance: PREDNISOLONE
     Dosage: 17.5 MILLIGRAM
     Dates: start: 20220930, end: 20221114
  3. PREDNISOLONE [Concomitant]
     Active Substance: PREDNISOLONE
     Dosage: 20 MILLIGRAM
     Dates: start: 20221115, end: 20221208
  4. PREDNISOLONE [Concomitant]
     Active Substance: PREDNISOLONE
     Dosage: 17 MILLIGRAM
     Dates: start: 20221209, end: 20230106
  5. PREDNISOLONE [Concomitant]
     Active Substance: PREDNISOLONE
     Dosage: 16 MILLIGRAM
     Dates: start: 20220107, end: 20230203
  6. PREDNISOLONE [Concomitant]
     Active Substance: PREDNISOLONE
     Dosage: 15 MILLIGRAM
     Dates: start: 20230204, end: 20230303
  7. PREDNISOLONE [Concomitant]
     Active Substance: PREDNISOLONE
     Dosage: 14 MILLIGRAM
     Dates: start: 20230304, end: 20230330
  8. NEORAL [Concomitant]
     Active Substance: CYCLOSPORINE
     Dosage: 200 MILLIGRAM
     Dates: start: 20220930, end: 20230330
  9. MYTELASE [Concomitant]
     Active Substance: AMBENONIUM CHLORIDE
     Dosage: 20 MILLIGRAM
     Dates: start: 20220930, end: 20230330

REACTIONS (1)
  - Myasthenia gravis [Unknown]
